FAERS Safety Report 5120454-5 (Version None)
Quarter: 2006Q4

REPORT INFORMATION
  Report Type: 
  Country: None (occurrence: None)
  Receive Date: 20061004
  Receipt Date: 20060925
  Transmission Date: 20070319
  Serious: Yes (Hospitalization)
  Sender: FDA-Public Use
  Company Number: 2006UW18722

PATIENT
  Age: 20 Year
  Sex: Female

DRUGS (3)
  1. IRESSA [Suspect]
     Indication: NEOPLASM
     Route: 048
     Dates: start: 20060907, end: 20060920
  2. IRINOTECAN HCL [Suspect]
     Dates: start: 20060909, end: 20060920
  3. VINCRISTINE [Suspect]
     Dates: start: 20060909, end: 20060920

REACTIONS (6)
  - HYPOKALAEMIA [None]
  - HYPONATRAEMIA [None]
  - HYPOPHOSPHATAEMIA [None]
  - MUCOSAL INFLAMMATION [None]
  - OESOPHAGITIS [None]
  - VOMITING [None]
